FAERS Safety Report 9815755 (Version 2)
Quarter: 2014Q1

REPORT INFORMATION
  Report Type: Spontaneous
  Country: KW (occurrence: KW)
  Receive Date: 20140114
  Receipt Date: 20140122
  Transmission Date: 20141002
  Serious: Yes (Death)
  Sender: FDA-Public Use
  Company Number: KW-BIOMARINAP-KW-2014-102239

PATIENT
  Age: 12 Year
  Sex: Female

DRUGS (1)
  1. ALDURAZYME [Suspect]
     Indication: MUCOPOLYSACCHARIDOSIS I
     Dosage: UNK

REACTIONS (5)
  - Acute respiratory distress syndrome [Fatal]
  - Pneumonia influenzal [Unknown]
  - Pyrexia [Unknown]
  - Sleep apnoea syndrome [Unknown]
  - Hypoxia [Unknown]
